FAERS Safety Report 5369913-0 (Version None)
Quarter: 2007Q2

REPORT INFORMATION
  Report Type: 
  Country: None (occurrence: None)
  Receive Date: 20070621
  Receipt Date: 20070605
  Transmission Date: 20071010
  Serious: Yes (Other)
  Sender: FDA-Public Use
  Company Number: 157150ISR

PATIENT
  Age: 46 Year
  Sex: Female

DRUGS (2)
  1. DICLOFENAC [Suspect]
     Indication: GOUT
     Dosage: 50 MG ORAL
     Route: 048
     Dates: start: 20070502, end: 20070502
  2. DICLOFENAC [Suspect]
     Indication: MYALGIA
     Dosage: 50 MG ORAL
     Route: 048
     Dates: start: 20070502, end: 20070502

REACTIONS (3)
  - DISTURBANCE IN ATTENTION [None]
  - FEELING ABNORMAL [None]
  - MYDRIASIS [None]
